FAERS Safety Report 8044467-9 (Version None)
Quarter: 2011Q4

REPORT INFORMATION
  Report Type: 
  Country: None (occurrence: None)
  Receive Date: 20111202
  Receipt Date: 20101220
  Transmission Date: 20120403
  Serious: Yes (Other)
  Sender: FDA-Public Use
  Company Number: 2010SP065553

PATIENT
  Age: 22 Year
  Sex: Female
  Weight: 58.9676 kg

DRUGS (1)
  1. NUVARING [Suspect]
     Indication: CONTRACEPTION
     Dates: start: 20040801, end: 20090101

REACTIONS (8)
  - PLANTAR FASCIITIS [None]
  - WEIGHT INCREASED [None]
  - TONSILLECTOMY [None]
  - MIGRAINE [None]
  - HYPERCOAGULATION [None]
  - DEEP VEIN THROMBOSIS [None]
  - BLOOD DISORDER [None]
  - BURSITIS [None]
